FAERS Safety Report 9718539 (Version 1)
Quarter: 2013Q4

REPORT INFORMATION
  Report Type: Not Available
  Country: US (occurrence: US)
  Receive Date: 20131125
  Receipt Date: 20131125
  Transmission Date: 20140711
  Serious: No
  Sender: FDA-Public Use
  Company Number: US-VIVUS-2013V1000779

PATIENT
  Age: 33 Year
  Sex: Female
  Weight: 103.06 kg

DRUGS (3)
  1. QSYMIA 7.5MG/46MG [Suspect]
     Indication: PRODUCT USED FOR UNKNOWN INDICATION
     Route: 048
     Dates: start: 201309, end: 201309
  2. QSYMIA 3.75MG/23MG [Suspect]
     Indication: PRODUCT USED FOR UNKNOWN INDICATION
     Route: 048
     Dates: start: 201308, end: 2013
  3. BENICAR [Concomitant]
     Indication: HYPERTENSION
     Route: 048

REACTIONS (6)
  - Arthralgia [Recovering/Resolving]
  - Strabismus [Not Recovered/Not Resolved]
  - Hypoaesthesia [Not Recovered/Not Resolved]
  - Paraesthesia [Recovering/Resolving]
  - Back pain [Recovering/Resolving]
  - Hypoaesthesia oral [Not Recovered/Not Resolved]
